FAERS Safety Report 6130433-7 (Version None)
Quarter: 2009Q1

REPORT INFORMATION
  Report Type: 
  Country: None (occurrence: None)
  Receive Date: 20090323
  Receipt Date: 20090310
  Transmission Date: 20090719
  Serious: Yes (Hospitalization)
  Sender: FDA-Public Use
  Company Number: 2009PV037432

PATIENT
  Age: 37 Year
  Sex: Female

DRUGS (6)
  1. SYMLIN [Suspect]
     Indication: TYPE 1 DIABETES MELLITUS
     Dosage: 30 MCG; BID; SC,; SC
     Route: 058
     Dates: start: 20070301, end: 20070101
  2. SYMLIN [Suspect]
     Indication: TYPE 1 DIABETES MELLITUS
     Dosage: 30 MCG; BID; SC,; SC
     Route: 058
     Dates: start: 20090201
  3. SYMLIN [Suspect]
     Indication: TYPE 1 DIABETES MELLITUS
     Dosage: 60 MCG; BID; SC, 60 MCG; TID; SC
     Route: 058
     Dates: start: 20070101, end: 20080221
  4. SYMLIN [Suspect]
     Indication: TYPE 1 DIABETES MELLITUS
     Dosage: 60 MCG; BID; SC, 60 MCG; TID; SC
     Route: 058
     Dates: start: 20080501, end: 20081201
  5. SYMLIN [Suspect]
     Indication: TYPE 1 DIABETES MELLITUS
     Dosage: 60 MCG; BID; SC, 60 MCG; TID; SC
     Route: 058
     Dates: start: 20081201, end: 20090201
  6. INSULIN [Suspect]
     Indication: TYPE 1 DIABETES MELLITUS

REACTIONS (5)
  - BLADDER PROLAPSE [None]
  - BLOOD GLUCOSE DECREASED [None]
  - BLOOD GLUCOSE INCREASED [None]
  - DYSPEPSIA [None]
  - UTERINE PROLAPSE [None]
